FAERS Safety Report 14261988 (Version 1)
Quarter: 2017Q4

REPORT INFORMATION
  Report Type: Report from Study
  Country: US (occurrence: US)
  Receive Date: 20171208
  Receipt Date: 20171208
  Transmission Date: 20180321
  Serious: Yes (Other)
  Sender: FDA-Public Use
  Company Number: US-ARIAD PHARMACEUTICALS, INC-2017US008572

PATIENT
  Sex: Female

DRUGS (1)
  1. PONATINIB [Suspect]
     Active Substance: PONATINIB
     Indication: ACUTE LYMPHOCYTIC LEUKAEMIA RECURRENT
     Dosage: 30 MG, QD
     Route: 048
     Dates: start: 20170106

REACTIONS (12)
  - Appetite disorder [Unknown]
  - Chronic disease [Unknown]
  - White blood cell count increased [Unknown]
  - Nausea [Unknown]
  - Weight decreased [Unknown]
  - Stem cell transplant [Unknown]
  - Febrile neutropenia [Unknown]
  - Blood alkaline phosphatase increased [Unknown]
  - Tachycardia [Unknown]
  - Neuropathy peripheral [Unknown]
  - Liver function test increased [Unknown]
  - Weight increased [Unknown]
